FAERS Safety Report 8776425 (Version 1)
Quarter: 2012Q4

REPORT INFORMATION
  Report Type: 
  Country: NL (occurrence: NL)
  Receive Date: 20120910
  Receipt Date: 20120910
  Transmission Date: 20130627
  Serious: Yes (Other)
  Sender: FDA-Public Use
  Company Number: PHHY2012NL077313

PATIENT
  Age: 62 Year
  Sex: Male

DRUGS (7)
  1. FUROSEMIDE [Suspect]
     Indication: OEDEMA PERIPHERAL
     Dosage: 40 mg, daily
  2. LICORICE [Suspect]
     Dosage: 300 g, daily
  3. SALMETEROL [Concomitant]
  4. FLUTICASONE [Concomitant]
  5. TIOTROPIUM [Concomitant]
  6. PERINDOPRIL [Concomitant]
     Indication: HYPERTENSION
     Dosage: 4 mg, daily
  7. SPIRONOLACTONE [Concomitant]
     Dosage: 50 mg, daily

REACTIONS (8)
  - Hypertension [Unknown]
  - Emphysema [Unknown]
  - Ventricular tachycardia [Unknown]
  - Metabolic alkalosis [Recovered/Resolved]
  - Hypokalaemia [Unknown]
  - Blood chloride decreased [Recovered/Resolved]
  - Oedema peripheral [Unknown]
  - Wrong technique in drug usage process [Unknown]
